FAERS Safety Report 5120129-2 (Version None)
Quarter: 2006Q4

REPORT INFORMATION
  Report Type: 
  Country: None (occurrence: None)
  Receive Date: 20061002
  Receipt Date: 20061002
  Transmission Date: 20070319
  Serious: Yes (Hospitalization)
  Sender: FDA-Public Use
  Company Number: None

PATIENT
  Age: 32 Year
  Sex: Male

DRUGS (1)
  1. TRAMADOL HCL [Suspect]
     Indication: PAIN
     Dosage: 60 MG SINGLE DOSE IM
     Route: 030
     Dates: start: 20060106, end: 20060111

REACTIONS (2)
  - RASH [None]
  - THERAPY NON-RESPONDER [None]
